FAERS Safety Report 24648983 (Version 1)
Quarter: 2024Q4

REPORT INFORMATION
  Report Type: Spontaneous
  Country: US (occurrence: US)
  Receive Date: 20241121
  Receipt Date: 20241121
  Transmission Date: 20250114
  Serious: Yes (Other)
  Sender: MERCK
  Company Number: US-009507513-2411USA008126

PATIENT
  Age: 70 Year
  Sex: Female

DRUGS (2)
  1. KEYTRUDA [Suspect]
     Active Substance: PEMBROLIZUMAB
     Indication: Small cell lung cancer
     Dosage: ONCE EVERY 6 WEEKS (TOTAL 8 CYCLES OVER 11 MONTHS)
  2. KEYTRUDA [Suspect]
     Active Substance: PEMBROLIZUMAB
     Indication: Malignant neoplasm progression
     Dosage: ONCE EVERY 6 WEEKS

REACTIONS (3)
  - Cellulitis gangrenous [Unknown]
  - Wound infection [Unknown]
  - Product use in unapproved indication [Unknown]
